FAERS Safety Report 4363861-0 (Version None)
Quarter: 2004Q2

REPORT INFORMATION
  Report Type: 
  Country: None (occurrence: None)
  Receive Date: 20040521
  Receipt Date: 20040521
  Transmission Date: 20050107
  Serious: Yes (Other)
  Sender: FDA-Public Use
  Company Number: None

PATIENT
  Age: 79 Year
  Sex: Male
  Weight: 57 kg

DRUGS (1)
  1. MIDAZOLAM 2 MG/2 ML VIAL [Suspect]
     Indication: CATHETER PLACEMENT
     Dosage: 2 MG IM X 1
     Route: 030
     Dates: start: 20040520

REACTIONS (1)
  - SEDATION [None]
